FAERS Safety Report 4753044-4 (Version None)
Quarter: 2005Q3

REPORT INFORMATION
  Report Type: 
  Country: None (occurrence: None)
  Receive Date: 20050826
  Receipt Date: 20050412
  Transmission Date: 20060218
  Serious: Yes (Hospitalization, Other)
  Sender: FDA-Public Use
  Company Number: US-MERCK-0504USA02077

PATIENT
  Age: 76 Year
  Sex: Female
  Weight: 73 kg

DRUGS (18)
  1. VIOXX [Suspect]
     Indication: ARTHRITIS
     Route: 048
     Dates: start: 20010101, end: 20040930
  2. VIOXX [Suspect]
     Route: 048
     Dates: start: 20010101, end: 20040930
  3. ASPIRIN [Concomitant]
     Indication: PROPHYLAXIS
     Route: 065
  4. PLAVIX [Concomitant]
     Indication: CARDIAC DISORDER
     Route: 048
  5. COZAAR [Concomitant]
     Indication: HYPERTENSION
     Route: 048
  6. LABETALOL HYDROCHLORIDE [Concomitant]
     Indication: HYPERTENSION
     Route: 048
  7. HYDRODIURIL [Concomitant]
     Route: 048
  8. ZOCOR [Concomitant]
     Indication: BLOOD CHOLESTEROL INCREASED
     Route: 048
  9. NORVASC [Concomitant]
     Indication: HYPERTENSION
     Route: 048
  10. PROTONIX [Concomitant]
     Indication: CARDIAC DISORDER
     Route: 048
  11. HYTRIN [Concomitant]
     Route: 048
  12. FLAVON GLYCOSIDE [Concomitant]
     Route: 065
  13. GLYBURIDE [Concomitant]
     Indication: DIABETES MELLITUS
     Route: 048
  14. HYZAAR [Concomitant]
     Indication: HYPERTENSION
     Route: 048
  15. CLARITIN [Concomitant]
     Route: 065
  16. VERAPAMIL [Concomitant]
     Route: 065
  17. NEURONTIN [Concomitant]
     Route: 065
  18. GLUCOPHAGE [Concomitant]
     Route: 065

REACTIONS (35)
  - ACUTE PULMONARY OEDEMA [None]
  - ANAEMIA [None]
  - AORTIC VALVE CALCIFICATION [None]
  - ATRIAL FIBRILLATION [None]
  - CARDIAC FAILURE CONGESTIVE [None]
  - CARDIAC MURMUR [None]
  - CARDIOMYOPATHY [None]
  - CAROTID BRUIT [None]
  - CEREBRAL INFARCTION [None]
  - CEREBROVASCULAR ACCIDENT [None]
  - CORONARY ARTERY DISEASE [None]
  - CORONARY ARTERY STENOSIS [None]
  - COUGH [None]
  - DILATATION ATRIAL [None]
  - ENCEPHALOMALACIA [None]
  - FATIGUE [None]
  - HYPERCHOLESTEROLAEMIA [None]
  - HYPERTENSION [None]
  - ISCHAEMIC CARDIOMYOPATHY [None]
  - LUNG INFILTRATION [None]
  - MALIGNANT HYPERTENSION [None]
  - MASS [None]
  - MITRAL VALVE CALCIFICATION [None]
  - MITRAL VALVE INCOMPETENCE [None]
  - MYOCARDIAL INFARCTION [None]
  - OEDEMA PERIPHERAL [None]
  - PERICARDIAL EFFUSION [None]
  - PLEURAL EFFUSION [None]
  - PULMONARY HYPERTENSION [None]
  - RASH [None]
  - RASH MACULAR [None]
  - RENAL FAILURE [None]
  - TRANSIENT ISCHAEMIC ATTACK [None]
  - TRICUSPID VALVE INCOMPETENCE [None]
  - VENTRICULAR HYPERTROPHY [None]
